FAERS Safety Report 20674660 (Version 1)
Quarter: 2022Q2

REPORT INFORMATION
  Report Type: Report from Study
  Country: CN (occurrence: CN)
  Receive Date: 20220405
  Receipt Date: 20220405
  Transmission Date: 20220721
  Serious: Yes (Other)
  Sender: FDA-Public Use
  Company Number: CN-JNJFOC-20220356863

PATIENT

DRUGS (4)
  1. ESKETAMINE [Suspect]
     Active Substance: ESKETAMINE
     Indication: Major depression
  2. ESKETAMINE [Suspect]
     Active Substance: ESKETAMINE
     Indication: Suicidal ideation
  3. CITALOPRAM [Suspect]
     Active Substance: CITALOPRAM HYDROBROMIDE
     Indication: Major depression
     Route: 065
  4. CITALOPRAM [Suspect]
     Active Substance: CITALOPRAM HYDROBROMIDE
     Indication: Suicidal ideation

REACTIONS (7)
  - Seizure [Unknown]
  - Heart rate irregular [Unknown]
  - Sexual dysfunction [Unknown]
  - Constipation [Unknown]
  - Dry mouth [Unknown]
  - Nausea [Unknown]
  - Vomiting [Unknown]
